FAERS Safety Report 5793211-4 (Version None)
Quarter: 2008Q2

REPORT INFORMATION
  Report Type: 
  Country: None (occurrence: None)
  Receive Date: 20080626
  Receipt Date: 20080626
  Transmission Date: 20081010
  Serious: Yes (Life-Threatening, Hospitalization)
  Sender: FDA-Public Use
  Company Number: None

PATIENT
  Age: 42 Year
  Sex: Male
  Weight: 59 kg

DRUGS (5)
  1. PHENYTOIN [Suspect]
     Indication: BRAIN INJURY
     Dosage: 200 MG BID PO
     Route: 048
  2. PHENYTOIN [Suspect]
     Indication: CONVULSION
     Dosage: 200 MG BID PO
     Route: 048
  3. VALPROIC ACID [Concomitant]
  4. DIAZEPAM [Concomitant]
  5. PREDNISONE TAPER [Concomitant]

REACTIONS (1)
  - STEVENS-JOHNSON SYNDROME [None]
